FAERS Safety Report 8367124-8 (Version None)
Quarter: 2012Q1

REPORT INFORMATION
  Report Type: 
  Country: None (occurrence: None)
  Receive Date: 20120323
  Receipt Date: 20111003
  Transmission Date: 20120608
  Serious: Yes (Disabling)
  Sender: FDA-Public Use
  Company Number: 163-21880-11072701

PATIENT
  Age: 62 Year
  Sex: Male

DRUGS (18)
  1. AMBIEN [Concomitant]
  2. AVAPRO(IRBESARTAN)(UNKNOWN) [Concomitant]
  3. NEXIUM [Concomitant]
  4. MULTIVITAMINS (MULTIVITAMINS)(UNKNOWN) [Concomitant]
  5. DURAGESIC(FENTANYL)(UNKNOWN) [Concomitant]
  6. TRICOR (FENOFIBRATE)(UNKNOWN) [Concomitant]
  7. TYLENOL(PARACETAMOL)(UNKNOWN) [Concomitant]
  8. BISPHOSPHONATES(BISPHOSPHONATES)(UNKNOWN) [Concomitant]
  9. ZOLOFT [Concomitant]
  10. VYTORIN(INEGY)(UNKNOWN) [Concomitant]
  11. PROVENTIL(SALBUTAMOL)(UNKNOWN) [Concomitant]
  12. ASPIRIN [Concomitant]
  13. FENTANYL [Concomitant]
  14. POTASSIUM(POTASSIUM)(UNKNOWN) [Concomitant]
  15. PREDNISONE [Concomitant]
  16. REVLIMID [Suspect]
     Indication: MULTIPLE MYELOMA
     Dosage: 10 MG, DAILY FOR 21 DAYS 7 DAYS OFF, PO
     Route: 048
     Dates: start: 20110315, end: 20110630
  17. SYMBICORT(SYMBICORT TURBUHALER ^DRACO^)(UNKNOWN) [Concomitant]
  18. ARANESP(DARBEPOETIN ALFA)(UNKNOWN) [Concomitant]

REACTIONS (1)
  - MULTIPLE MYELOMA [None]
